FAERS Safety Report 9177796 (Version 2)
Quarter: 2013Q1

REPORT INFORMATION
  Report Type: Spontaneous
  Country: US (occurrence: None)
  Receive Date: 20130319
  Receipt Date: 20130326
  Transmission Date: 20140127
  Serious: Yes (Other)
  Sender: FDA-Public Use
  Company Number: TPA2012A04432

PATIENT
  Age: 70 Year
  Sex: Male
  Weight: 110.22 kg

DRUGS (4)
  1. ACTOS (PIOGLITAZONE HYDROCHLORIDE) [Suspect]
     Indication: GLUCOSE TOLERANCE IMPAIRED
     Dosage: 1 IN 1 D
     Route: 048
     Dates: start: 20031124, end: 20090715
  2. DIOVAN (VALSARTAN) [Concomitant]
  3. LASIX (FUROSEMIDE) [Concomitant]
  4. CRESTOR (ROSUVASTATIN CALCIUM) [Concomitant]

REACTIONS (14)
  - Myalgia [None]
  - Fatigue [None]
  - Headache [None]
  - Oedema [None]
  - Fluid retention [None]
  - Bladder cyst [None]
  - Arthralgia [None]
  - Abdominal distension [None]
  - Weight increased [None]
  - Erythema [None]
  - Back pain [None]
  - Nephrolithiasis [None]
  - Prostate cancer [None]
  - Haematuria [None]
